FAERS Safety Report 5648586-3 (Version None)
Quarter: 2008Q1

REPORT INFORMATION
  Report Type: 
  Country: None (occurrence: None)
  Receive Date: 20080304
  Receipt Date: 20080221
  Transmission Date: 20080703
  Serious: Yes (Death, Other)
  Sender: FDA-Public Use
  Company Number: JP-BRISTOL-MYERS SQUIBB COMPANY-14097091

PATIENT
  Age: 33 Year
  Sex: Male

DRUGS (6)
  1. IFOMIDE [Suspect]
     Indication: PROSTATE CANCER
     Route: 065
     Dates: start: 20060101, end: 20060101
  2. IFOMIDE [Suspect]
     Indication: METASTASES TO LUNG
     Route: 065
     Dates: start: 20060101, end: 20060101
  3. ETOPOSIDE [Suspect]
     Indication: PROSTATE CANCER
     Route: 065
     Dates: start: 20060101, end: 20060101
  4. ETOPOSIDE [Suspect]
     Indication: METASTASES TO LUNG
     Route: 065
     Dates: start: 20060101, end: 20060101
  5. CISPLATIN [Suspect]
     Indication: PROSTATE CANCER
     Route: 065
     Dates: start: 20060101, end: 20060101
  6. CISPLATIN [Suspect]
     Indication: METASTASES TO LUNG
     Route: 065
     Dates: start: 20060101, end: 20060101

REACTIONS (4)
  - CACHEXIA [None]
  - HAEMOGLOBIN DECREASED [None]
  - PLATELET COUNT DECREASED [None]
  - WHITE BLOOD CELL COUNT DECREASED [None]
